FAERS Safety Report 5256871-2 (Version None)
Quarter: 2007Q1

REPORT INFORMATION
  Report Type: 
  Country: None (occurrence: None)
  Receive Date: 20070306
  Receipt Date: 20070226
  Transmission Date: 20070707
  Serious: Yes (Other)
  Sender: FDA-Public Use
  Company Number: US-ELI_LILLY_AND_COMPANY-US200612003003

PATIENT
  Age: 75 Year
  Sex: Female

DRUGS (1)
  1. FORTEO [Suspect]
     Dosage: UNK, UNK
     Dates: start: 20040101, end: 20070212

REACTIONS (7)
  - ABDOMINAL DISTENSION [None]
  - BEDRIDDEN [None]
  - CARDIAC PACEMAKER INSERTION [None]
  - FRUSTRATION [None]
  - INJECTION SITE BRUISING [None]
  - MALAISE [None]
  - NAIL INFECTION [None]
